FAERS Safety Report 7342873-9 (Version None)
Quarter: 2011Q1

REPORT INFORMATION
  Report Type: 
  Country: None (occurrence: None)
  Receive Date: 20110302
  Receipt Date: 20110215
  Transmission Date: 20110831
  Serious: Yes (Life-Threatening, Hospitalization)
  Sender: FDA-Public Use
  Company Number: AUR-APL-2011-00443

PATIENT
  Age: 65 Year
  Sex: Male

DRUGS (8)
  1. BENDROFLUAZIDE [Concomitant]
  2. ATENOLOL [Concomitant]
  3. SIMVASTATIN [Suspect]
     Indication: MYOCARDIAL ISCHAEMIA
     Dosage: 40MG, DAILY, ORAL
     Route: 048
     Dates: start: 20010101, end: 20080512
  4. RAMIPRIL [Concomitant]
  5. DOXAZOSIN [Concomitant]
  6. FUSIDIC ACID [Suspect]
     Indication: SEPTIC ARTHRITIS STAPHYLOCOCCAL
     Dosage: 500MG, TID, ORAL
     Route: 048
  7. AMLODIPINE BESYLATE [Concomitant]
  8. FLOXACILLIN SODIUM [Concomitant]

REACTIONS (7)
  - HYPOXIA [None]
  - DRUG INTERACTION [None]
  - HYPOTENSION [None]
  - RENAL FAILURE ACUTE [None]
  - HEPATIC STEATOSIS [None]
  - RHABDOMYOLYSIS [None]
  - ARTHRITIS BACTERIAL [None]
